FAERS Safety Report 20098283 (Version 1)
Quarter: 2021Q4

REPORT INFORMATION
  Report Type: Spontaneous
  Country: CN (occurrence: CN)
  Receive Date: 20211122
  Receipt Date: 20211122
  Transmission Date: 20220304
  Serious: Yes (Other)
  Sender: FDA-Public Use
  Company Number: CN-BAYER-2021A252899

PATIENT
  Age: 53 Year
  Sex: Female
  Weight: 48 kg

DRUGS (2)
  1. GLUCOBAY [Suspect]
     Active Substance: ACARBOSE
     Indication: Diabetes mellitus
     Dosage: 50 MG, TID
     Route: 048
     Dates: start: 20211103, end: 20211103
  2. GLUCOBAY [Suspect]
     Active Substance: ACARBOSE
     Indication: Diabetes mellitus
     Dosage: 100 MG, TID
     Route: 048
     Dates: start: 20211104, end: 20211107

REACTIONS (4)
  - Diabetes mellitus inadequate control [None]
  - Decreased appetite [None]
  - Nausea [Recovered/Resolved]
  - Vomiting [Recovered/Resolved]

NARRATIVE: CASE EVENT DATE: 20211103
